FAERS Safety Report 24641219 (Version 1)
Quarter: 2024Q4

REPORT INFORMATION
  Report Type: Spontaneous
  Country: FR (occurrence: FR)
  Receive Date: 20241120
  Receipt Date: 20241120
  Transmission Date: 20250115
  Serious: Yes (Hospitalization, Other)
  Sender: CHEPLAPHARM
  Company Number: None

PATIENT
  Age: 62 Year
  Sex: Female
  Weight: 43 kg

DRUGS (15)
  1. CLONAZEPAM [Suspect]
     Active Substance: CLONAZEPAM
     Indication: Seizure
     Dosage: STRENGTH: 1MG/1ML; DILUTABLE SOLUTIONS FOR INJECTION IN AMPOULES?DAILY DOSE: 1 DOSAGE FORM
     Route: 042
     Dates: start: 20240803, end: 20240803
  2. OMNIPAQUE [Suspect]
     Active Substance: IOHEXOL
     Indication: Computerised tomogram head
     Dosage: DAILY DOSE: 1 DOSAGE FORM
     Route: 042
     Dates: start: 20240804, end: 20240804
  3. BISOPROLOL FUMARATE [Concomitant]
     Active Substance: BISOPROLOL FUMARATE
     Indication: Hypertension
     Dosage: DAILY DOSE: 5 MILLIGRAM
     Route: 048
  4. PERINDOPRIL [Concomitant]
     Active Substance: PERINDOPRIL
     Indication: Hypertension
     Dosage: DAILY DOSE: 10 MILLIGRAM
     Route: 048
  5. AMLODIPINE [Concomitant]
     Active Substance: AMLODIPINE BESYLATE
     Indication: Hypertension
     Dosage: DAILY DOSE: 5 MILLIGRAM
     Route: 048
  6. CHOLECALCIFEROL [Concomitant]
     Active Substance: CHOLECALCIFEROL
     Route: 048
  7. LACTULOSE [Concomitant]
     Active Substance: LACTULOSE
     Dosage: DAILY DOSE: 20 GRAM
     Route: 048
  8. NASACORT [Concomitant]
     Active Substance: TRIAMCINOLONE ACETONIDE
     Dosage: DAILY DOSE: 4 DOSAGE FORM
     Route: 045
  9. BILASTINE [Concomitant]
     Active Substance: BILASTINE
     Dosage: DAILY DOSE: 20 MILLIGRAM
     Route: 048
  10. TRIMEBUTINE MALEATE [Concomitant]
     Active Substance: TRIMEBUTINE MALEATE
     Dosage: DAILY DOSE: 3 DOSAGE FORM
     Route: 048
  11. COLCHICINE [Concomitant]
     Active Substance: COLCHICINE
     Dosage: DAILY DOSE: 0.5 DOSAGE FORM
     Route: 048
  12. Dacryoserum [Concomitant]
     Dosage: DAILY DOSE: 3 DOSAGE FORM
     Route: 031
  13. DEXAMETHASONE\OXYTETRACYCLINE [Concomitant]
     Active Substance: DEXAMETHASONE\OXYTETRACYCLINE
     Dosage: DAILY DOSE: 3 DOSAGE FORM
     Route: 031
  14. KARDEGIC [Concomitant]
     Active Substance: ASPIRIN DL-LYSINE
     Dosage: DAILY DOSE: 1 DOSAGE FORM
     Route: 048
     Dates: start: 20240806, end: 20240809
  15. TAHOR [Concomitant]
     Active Substance: ATORVASTATIN CALCIUM
     Dosage: DAILY DOSE: 1 DOSAGE FORM
     Route: 048
     Dates: start: 20240806

REACTIONS (3)
  - Symmetrical drug-related intertriginous and flexural exanthema [Recovered/Resolved]
  - Respiratory failure [Unknown]
  - Hyponatraemia [Unknown]

NARRATIVE: CASE EVENT DATE: 20240803
